FAERS Safety Report 4292942-5 (Version None)
Quarter: 2004Q1

REPORT INFORMATION
  Report Type: 
  Country: None (occurrence: None)
  Receive Date: 20040212
  Receipt Date: 20030730
  Transmission Date: 20041129
  Serious: Yes (Other)
  Sender: FDA-Public Use
  Company Number: US-GLAXOSMITHKLINE-A0418851A

PATIENT
  Age: 30 Year
  Sex: Male

DRUGS (3)
  1. PAXIL [Suspect]
     Indication: DEPRESSION
     Dates: start: 20020201, end: 20020523
  2. CELEBREX [Concomitant]
  3. COMBIVENT [Concomitant]

REACTIONS (4)
  - DRUG WITHDRAWAL SYNDROME [None]
  - INSOMNIA [None]
  - MENTAL DISORDER [None]
  - SEXUAL DYSFUNCTION [None]
